FAERS Safety Report 16015883 (Version 1)
Quarter: 2019Q1

REPORT INFORMATION
  Report Type: Spontaneous
  Country: US (occurrence: US)
  Receive Date: 20190228
  Receipt Date: 20190228
  Transmission Date: 20190418
  Serious: Yes (Other)
  Sender: FDA-Public Use
  Company Number: US-SA-2019SA053281

PATIENT

DRUGS (6)
  1. ENBREL [Suspect]
     Active Substance: ETANERCEPT
  2. ARAVA [Suspect]
     Active Substance: LEFLUNOMIDE
  3. HUMIRA [Suspect]
     Active Substance: ADALIMUMAB
  4. ORENCIA [Suspect]
     Active Substance: ABATACEPT
  5. METHOTREXATE. [Suspect]
     Active Substance: METHOTREXATE
  6. REMICADE [Suspect]
     Active Substance: INFLIXIMAB

REACTIONS (3)
  - Drug ineffective [Unknown]
  - Adverse event [Unknown]
  - Arthritis bacterial [Unknown]
